FAERS Safety Report 4521839-8 (Version None)
Quarter: 2004Q4

REPORT INFORMATION
  Report Type: 
  Country: None (occurrence: None)
  Receive Date: 20041209
  Receipt Date: 20041201
  Transmission Date: 20050328
  Serious: Yes (Death, Hospitalization, Other)
  Sender: FDA-Public Use
  Company Number: DE-JNJFOC-20041104195

PATIENT
  Age: 81 Year
  Sex: Female
  Weight: 60 kg

DRUGS (3)
  1. CAELYX [Suspect]
     Dosage: 40 MG X2 CYCLES
     Route: 042
  2. ZOFRAN [Concomitant]
  3. VERGENTAN [Concomitant]
     Route: 042

REACTIONS (3)
  - GENERALISED OEDEMA [None]
  - MALIGNANT NEOPLASM PROGRESSION [None]
  - RENAL FAILURE [None]
